FAERS Safety Report 24301869 (Version 3)
Quarter: 2025Q1

REPORT INFORMATION
  Report Type: Spontaneous
  Country: GB (occurrence: GB)
  Receive Date: 20240910
  Receipt Date: 20250213
  Transmission Date: 20250409
  Serious: Yes (Life-Threatening, Hospitalization, Other)
  Sender: AUROBINDO
  Company Number: GB-ADVANZ PHARMA-202108005843

PATIENT
  Age: 74 Year
  Sex: Female

DRUGS (8)
  1. PREGABALIN [Suspect]
     Active Substance: PREGABALIN
     Indication: Back pain
     Route: 065
  2. PREGABALIN [Suspect]
     Active Substance: PREGABALIN
     Dosage: 300 MILLIGRAM, TWO TIMES A DAY
     Route: 065
  3. PREGABALIN [Suspect]
     Active Substance: PREGABALIN
     Route: 065
  4. PREGABALIN [Suspect]
     Active Substance: PREGABALIN
     Dosage: 5 MILLIGRAM, ONCE A DAY
     Route: 065
  5. CANDESARTAN [Concomitant]
     Active Substance: CANDESARTAN
     Indication: Product used for unknown indication
     Dosage: 2 MILLIGRAM, ONCE A DAY
     Route: 065
  6. LEVOTHYROXINE [Concomitant]
     Active Substance: LEVOTHYROXINE
     Indication: Hypothyroidism
     Dosage: 75 MILLIGRAM, ONCE A DAY
     Route: 065
  7. ACETAMINOPHEN [Concomitant]
     Active Substance: ACETAMINOPHEN
     Indication: Product used for unknown indication
     Dosage: 1 GRAM, 3 TIMES A DAY
     Route: 065
  8. SUMATRIPTAN [Concomitant]
     Active Substance: SUMATRIPTAN
     Indication: Migraine
     Route: 065

REACTIONS (13)
  - Abnormal behaviour [Recovering/Resolving]
  - Cognitive disorder [Recovering/Resolving]
  - Hallucination, visual [Recovering/Resolving]
  - Major depression [Recovering/Resolving]
  - Suicidal ideation [Recovering/Resolving]
  - Social avoidant behaviour [Recovering/Resolving]
  - Screaming [Recovering/Resolving]
  - Withdrawal syndrome [Recovering/Resolving]
  - Decreased appetite [Unknown]
  - Headache [Unknown]
  - Affective disorder [Unknown]
  - Pain [Unknown]
  - Sleep disorder [Unknown]
